FAERS Safety Report 5712691-3 (Version None)
Quarter: 2008Q2

REPORT INFORMATION
  Report Type: 
  Country: None (occurrence: None)
  Receive Date: 20080422
  Receipt Date: 20080411
  Transmission Date: 20081010
  Serious: Yes (Death)
  Sender: FDA-Public Use
  Company Number: MX-NOVOPROD-273153

PATIENT
  Sex: Male
  Weight: 50 kg

DRUGS (6)
  1. LEVEMIR [Suspect]
     Indication: DIABETES MELLITUS
     Dosage: 21 U, QD
     Dates: start: 20070917
  2. DICLOFENACO                        /00372301/ [Concomitant]
     Dosage: 100 MG, QD
  3. KETOROLACO GI [Concomitant]
     Dosage: 30 MG, QD
  4. PANTOPRAZOL [Concomitant]
     Dosage: 40 MG, QD
  5. DULOXETINE [Concomitant]
     Dosage: 60 MG, QD
  6. ENALAPRIL MALEATE [Concomitant]
     Dosage: 5 MG, QD

REACTIONS (3)
  - CARDIAC DISORDER [None]
  - CEREBROVASCULAR DISORDER [None]
  - DEATH [None]
